FAERS Safety Report 5291086-3 (Version None)
Quarter: 2007Q2

REPORT INFORMATION
  Report Type: 
  Country: None (occurrence: None)
  Receive Date: 20070409
  Receipt Date: 20070330
  Transmission Date: 20071010
  Serious: Yes (Life-Threatening, Hospitalization)
  Sender: FDA-Public Use
  Company Number: FR-ABBOTT-06P-056-0354142-00

PATIENT
  Age: 35 Year
  Sex: Female

DRUGS (3)
  1. DEPAKENE [Suspect]
     Indication: DRUG USE FOR UNKNOWN INDICATION
     Route: 048
     Dates: start: 20050701, end: 20061110
  2. ETHYL LOFLAZEPATE [Suspect]
     Indication: DRUG USE FOR UNKNOWN INDICATION
     Route: 048
     Dates: start: 20050701, end: 20061110
  3. CLOZAPINE [Suspect]
     Indication: SCHIZOTYPAL PERSONALITY DISORDER
     Route: 048
     Dates: start: 20060318, end: 20061110

REACTIONS (4)
  - AGRANULOCYTOSIS [None]
  - INVESTIGATION ABNORMAL [None]
  - PAROTITIS [None]
  - PYREXIA [None]
